FAERS Safety Report 7918574-2 (Version None)
Quarter: 2011Q4

REPORT INFORMATION
  Report Type: 
  Country: None (occurrence: None)
  Receive Date: 20111116
  Receipt Date: 20111116
  Transmission Date: 20120403
  Serious: Yes (Other)
  Sender: FDA-Public Use
  Company Number: KR-PFIZER INC-2011050136

PATIENT
  Age: 75 Year
  Sex: Male
  Weight: 54 kg

DRUGS (2)
  1. DOXYCYCLINE MONOHYDRATE [Suspect]
     Indication: SCRUB TYPHUS
     Dosage: 100 MG, UNK
  2. ALMAGATE [Interacting]

REACTIONS (3)
  - DRUG RESISTANCE [None]
  - DRUG INTERACTION [None]
  - ENCEPHALITIS [None]
